FAERS Safety Report 7651038-2 (Version None)
Quarter: 2011Q3

REPORT INFORMATION
  Report Type: 
  Country: None (occurrence: None)
  Receive Date: 20110727
  Receipt Date: 20110714
  Transmission Date: 20111222
  Serious: Yes (Other)
  Sender: FDA-Public Use
  Company Number: JP-2011-11157

PATIENT
  Sex: Male

DRUGS (1)
  1. SAMSCA [Suspect]
     Indication: CARDIAC FAILURE CONGESTIVE
     Dosage: 7.5 MG MILLIGRAM(S), DAILY DOSE, ORAL
     Route: 048

REACTIONS (1)
  - CEREBRAL INFARCTION [None]
